FAERS Safety Report 5726440-6 (Version None)
Quarter: 2008Q2

REPORT INFORMATION
  Report Type: 
  Country: None (occurrence: None)
  Receive Date: 20080502
  Receipt Date: 20080429
  Transmission Date: 20081010
  Serious: Yes (Other)
  Sender: FDA-Public Use
  Company Number: B0512881A

PATIENT
  Sex: Female

DRUGS (1)
  1. SERETIDE [Suspect]
     Indication: ASTHMA
     Route: 055

REACTIONS (8)
  - ASTHMA [None]
  - COUGH [None]
  - GAIT DISTURBANCE [None]
  - INCREASED UPPER AIRWAY SECRETION [None]
  - MALAISE [None]
  - NON-CARDIAC CHEST PAIN [None]
  - PHARMACEUTICAL PRODUCT COMPLAINT [None]
  - THERAPEUTIC RESPONSE DECREASED [None]
